FAERS Safety Report 7473908-0 (Version None)
Quarter: 2011Q2

REPORT INFORMATION
  Report Type: 
  Country: None (occurrence: None)
  Receive Date: 20110511
  Receipt Date: 20110405
  Transmission Date: 20111010
  Serious: Yes (Other)
  Sender: FDA-Public Use
  Company Number: US-BAYER-2010-008582

PATIENT
  Age: 44 Year
  Sex: Female
  Weight: 64.853 kg

DRUGS (11)
  1. YASMIN [Suspect]
     Indication: ORAL CONTRACEPTION
     Dosage: UNK
     Dates: start: 20070101, end: 20070830
  2. ALBUTEROL SULFATE [Concomitant]
  3. YAZ [Suspect]
     Indication: ORAL CONTRACEPTION
     Dosage: UNK
     Dates: start: 20070830, end: 20080122
  4. HYDROXYZINE HCL [Concomitant]
     Dosage: 50 MG, UNK
     Route: 048
     Dates: start: 20080405
  5. YAZ [Suspect]
     Indication: OVARIAN CYST
  6. PROVENTIL-HFA [Concomitant]
     Dosage: 90 UNK, UNK
     Dates: start: 20080211
  7. TYLENOL ES [Concomitant]
     Dosage: 1000 MG, UNK
  8. YASMIN [Suspect]
     Indication: OVARIAN CYST
  9. MELPHALAN HYDROCHLORIDE [Concomitant]
     Dosage: 20 MG, UNK
     Route: 048
     Dates: start: 20080405
  10. HYDROCODONE BITARTRATE AND ACETAMINOPHEN [Concomitant]
     Dosage: UNK
     Route: 048
     Dates: start: 20080405
  11. FLEXERIL [Concomitant]
     Dosage: 10 MG, UNK

REACTIONS (3)
  - CHOLECYSTITIS CHRONIC [None]
  - PAIN [None]
  - GALLBLADDER DISORDER [None]
